FAERS Safety Report 22879556 (Version 2)
Quarter: 2023Q4

REPORT INFORMATION
  Report Type: Report from Study
  Country: CA (occurrence: CA)
  Receive Date: 20230829
  Receipt Date: 20231222
  Transmission Date: 20240110
  Serious: Yes (Other)
  Sender: FDA-Public Use
  Company Number: CA-AMGEN-CANSP2023149161

PATIENT
  Age: 64 Year
  Sex: Female

DRUGS (5)
  1. REPATHA [Suspect]
     Active Substance: EVOLOCUMAB
     Indication: Type IIa hyperlipidaemia
     Dosage: UNK UNK, QMO
     Route: 065
  2. REPATHA [Suspect]
     Active Substance: EVOLOCUMAB
     Dosage: 140 MILLIGRAM
     Route: 065
  3. EZETIMIBE [Concomitant]
     Active Substance: EZETIMIBE
  4. ASPIRIN [Concomitant]
     Active Substance: ASPIRIN
  5. SYNTHROID [Concomitant]
     Active Substance: LEVOTHYROXINE SODIUM

REACTIONS (12)
  - Craniocerebral injury [Recovering/Resolving]
  - Road traffic accident [Not Recovered/Not Resolved]
  - Injection site reaction [Unknown]
  - Decreased appetite [Not Recovered/Not Resolved]
  - Injection site warmth [Recovered/Resolved]
  - Ill-defined disorder [Not Recovered/Not Resolved]
  - Injection site erythema [Recovered/Resolved]
  - Traumatic arthropathy [Not Recovered/Not Resolved]
  - Drug dose omission by device [Unknown]
  - Product preparation error [Unknown]
  - Device difficult to use [Unknown]
  - Lack of injection site rotation [Unknown]

NARRATIVE: CASE EVENT DATE: 20230101
